FAERS Safety Report 9437484 (Version 1)
Quarter: 2013Q3

REPORT INFORMATION
  Report Type: Report from Study
  Country: US (occurrence: US)
  Receive Date: 20130802
  Receipt Date: 20130802
  Transmission Date: 20140515
  Serious: Yes (Hospitalization)
  Sender: FDA-Public Use
  Company Number: US-JNJFOC-20130716714

PATIENT
  Age: 17 Year
  Sex: Female
  Weight: 54.3 kg

DRUGS (17)
  1. REMICADE [Suspect]
     Indication: CROHN^S DISEASE
     Route: 042
     Dates: start: 20111116, end: 20130109
  2. REMICADE [Suspect]
     Indication: CROHN^S DISEASE
     Route: 042
     Dates: start: 20090707, end: 20110309
  3. CIMZIA [Concomitant]
     Route: 065
     Dates: start: 20130301
  4. PREDNISONE [Concomitant]
     Route: 065
  5. METHOTREXATE [Concomitant]
     Route: 065
  6. BUDESONIDE [Concomitant]
     Route: 065
  7. 6-MERCAPTOPURINE [Concomitant]
     Route: 065
  8. CALCIUM CARBONATE [Concomitant]
     Route: 065
  9. CHOLECALCIFEROL [Concomitant]
     Route: 065
  10. FERROUS SULFATE [Concomitant]
     Route: 065
  11. FOLIC ACID [Concomitant]
     Route: 065
  12. LORATADINE [Concomitant]
     Route: 065
  13. MULTIVITAMIN [Concomitant]
     Route: 065
  14. OMEGA 3 FATTY ACID [Concomitant]
     Route: 065
  15. POTASSIUM CITRATE [Concomitant]
     Route: 065
  16. URSODIOL [Concomitant]
     Route: 065
  17. SUMATRIPTAN [Concomitant]
     Route: 065

REACTIONS (1)
  - Crohn^s disease [Recovered/Resolved]
